FAERS Safety Report 23224028 (Version 2)
Quarter: 2023Q4

REPORT INFORMATION
  Report Type: Spontaneous
  Country: DE (occurrence: None)
  Receive Date: 20231124
  Receipt Date: 20231218
  Transmission Date: 20240110
  Serious: Yes (Disabling, Other)
  Sender: FDA-Public Use
  Company Number: DE-ROCHE-3436098

PATIENT
  Age: 58 Year
  Sex: Female
  Weight: 55 kg

DRUGS (1)
  1. ROZLYTREK [Suspect]
     Active Substance: ENTRECTINIB
     Indication: Astrocytoma, low grade
     Route: 048
     Dates: start: 20221006, end: 20231001

REACTIONS (11)
  - Shoulder fracture [Unknown]
  - Joint effusion [Unknown]
  - Bone disorder [Unknown]
  - Tendon disorder [Unknown]
  - Joint swelling [Unknown]
  - Ataxia [Unknown]
  - Muscle rupture [Unknown]
  - Fall [Unknown]
  - Rotator cuff syndrome [Unknown]
  - Bone deformity [Unknown]
  - Tendon rupture [Not Recovered/Not Resolved]

NARRATIVE: CASE EVENT DATE: 20221201
